FAERS Safety Report 10179533 (Version 1)
Quarter: 2014Q2

REPORT INFORMATION
  Report Type: Spontaneous
  Country: US (occurrence: US)
  Receive Date: 20140519
  Receipt Date: 20140519
  Transmission Date: 20141212
  Serious: Yes (Other)
  Sender: FDA-Public Use
  Company Number: US-SHIRE-US201402115

PATIENT
  Age: 63 Year
  Sex: Female

DRUGS (2)
  1. VYVANSE [Suspect]
     Indication: PRODUCT USED FOR UNKNOWN INDICATION
     Dosage: 30 MG, 2X/DAY:BID
     Route: 048
     Dates: start: 2012
  2. MYSOLINE [Concomitant]
     Indication: PRODUCT USED FOR UNKNOWN INDICATION
     Dosage: UNK, UNKNOWN
     Route: 065
     Dates: end: 2014

REACTIONS (5)
  - Autoimmune thyroiditis [Unknown]
  - Lung infection [Unknown]
  - Oropharyngeal pain [Unknown]
  - Urticaria [Unknown]
  - Inappropriate schedule of drug administration [Unknown]
